FAERS Safety Report 4751251-8 (Version None)
Quarter: 2005Q3

REPORT INFORMATION
  Report Type: 
  Country: None (occurrence: None)
  Receive Date: 20050822
  Receipt Date: 20050811
  Transmission Date: 20060218
  Serious: Yes (Life-Threatening)
  Sender: FDA-Public Use
  Company Number: 05H-090-0302019-00

PATIENT
  Age: 21 Year
  Sex: Female

DRUGS (1)
  1. PENTOTHAL [Suspect]
     Indication: INTRACRANIAL PRESSURE INCREASED
     Dosage: 5 MG/KG, INTRAVENOUS  : 5 MG/KG, PER HOUR, CONTINUOUS INFUSION
     Route: 042

REACTIONS (7)
  - BLOOD POTASSIUM INCREASED [None]
  - BRADYCARDIA [None]
  - BRAIN OEDEMA [None]
  - CARDIAC ARREST [None]
  - COMPUTERISED TOMOGRAM ABNORMAL [None]
  - CONDITION AGGRAVATED [None]
  - HYPOKALAEMIA [None]
